FAERS Safety Report 22265669 (Version 1)
Quarter: 2023Q2

REPORT INFORMATION
  Report Type: Report from Study
  Country: CN (occurrence: CN)
  Receive Date: 20230428
  Receipt Date: 20230428
  Transmission Date: 20230722
  Serious: Yes (Other)
  Sender: FDA-Public Use
  Company Number: CN-JNJFOC-20230444860

PATIENT
  Sex: Male

DRUGS (3)
  1. ABIRATERONE ACETATE [Suspect]
     Active Substance: ABIRATERONE ACETATE
     Indication: Prostate cancer
     Route: 048
     Dates: start: 202009, end: 202108
  2. GOSERELIN [Suspect]
     Active Substance: GOSERELIN
     Indication: Prostate cancer
     Route: 065
     Dates: start: 202009, end: 202108
  3. PREDNISONE [Suspect]
     Active Substance: PREDNISONE
     Indication: Prostate cancer
     Route: 048

REACTIONS (7)
  - Erectile dysfunction [Unknown]
  - Hepatic function abnormal [Recovered/Resolved]
  - Libido decreased [Unknown]
  - Face oedema [Unknown]
  - Gynaecomastia [Unknown]
  - Hot flush [Unknown]
  - Off label use [Unknown]
